FAERS Safety Report 8164271-0 (Version None)
Quarter: 2012Q1

REPORT INFORMATION
  Report Type: 
  Country: None (occurrence: None)
  Receive Date: 20120224
  Receipt Date: 20111018
  Transmission Date: 20120608
  Serious: No
  Sender: FDA-Public Use
  Company Number: US-ASTRAZENECA-2011SE62831

PATIENT
  Age: 46 Year
  Sex: Male
  Weight: 79.8 kg

DRUGS (5)
  1. HYDROCOD [Concomitant]
  2. IBUPROFEN [Concomitant]
  3. BENADRYL [Concomitant]
     Indication: HYPERSENSITIVITY
  4. VICODIN [Concomitant]
  5. VIMOVO [Suspect]
     Indication: MYALGIA
     Dosage: 500 MG/ 20 MG, EVERY DAY
     Route: 048
     Dates: start: 20111007, end: 20111014

REACTIONS (3)
  - DIARRHOEA [None]
  - DRUG PRESCRIBING ERROR [None]
  - ABDOMINAL DISCOMFORT [None]
